FAERS Safety Report 24577009 (Version 1)
Quarter: 2024Q4

REPORT INFORMATION
  Report Type: Spontaneous
  Country: US (occurrence: US)
  Receive Date: 20241104
  Receipt Date: 20241104
  Transmission Date: 20250115
  Serious: No
  Sender: INCYTE
  Company Number: US-INCYTE CORPORATION-2024IN011299

PATIENT

DRUGS (1)
  1. JAKAFI [Suspect]
     Active Substance: RUXOLITINIB
     Indication: Essential thrombocythaemia
     Dosage: 15 MILLIGRAM, BID
     Route: 048
     Dates: start: 20241003

REACTIONS (5)
  - Dizziness [Unknown]
  - Movement disorder [Unknown]
  - Vision blurred [Unknown]
  - Vitreous floaters [Unknown]
  - Off label use [Unknown]

NARRATIVE: CASE EVENT DATE: 20241003
